FAERS Safety Report 21730026 (Version 1)
Quarter: 2022Q4

REPORT INFORMATION
  Report Type: Spontaneous
  Country: NO (occurrence: NO)
  Receive Date: 20221214
  Receipt Date: 20221214
  Transmission Date: 20230113
  Serious: Yes (Other)
  Sender: FDA-Public Use
  Company Number: None

PATIENT
  Age: 42 Year
  Sex: Female

DRUGS (1)
  1. METHYLPHENIDATE [Suspect]
     Active Substance: METHYLPHENIDATE
     Indication: Attention deficit hyperactivity disorder
     Dosage: FORM STRENGTH  AND UNIT DOSE: 20 MG, FREQUENCY TIME : 1 DAYS
     Dates: start: 20220329, end: 20220429

REACTIONS (3)
  - Diarrhoea haemorrhagic [Recovered/Resolved]
  - Haematochezia [Unknown]
  - Diarrhoea [Recovered/Resolved]

NARRATIVE: CASE EVENT DATE: 20220404
